FAERS Safety Report 8615582-3 (Version None)
Quarter: 2012Q3

REPORT INFORMATION
  Report Type: 
  Country: None (occurrence: None)
  Receive Date: 20120823
  Receipt Date: 20120816
  Transmission Date: 20120928
  Serious: Yes (Hospitalization, Other)
  Sender: FDA-Public Use
  Company Number: US-JNJFOC-20120520574

PATIENT
  Sex: Male

DRUGS (5)
  1. TYLENOL [Suspect]
     Route: 065
  2. ADVIL [Suspect]
     Indication: HEADACHE
     Route: 065
     Dates: start: 20100401
  3. TYLENOL [Suspect]
     Indication: PAIN
     Route: 065
  4. MOTRIN [Suspect]
     Indication: PAIN
     Route: 065
  5. MOTRIN [Suspect]
     Route: 065

REACTIONS (8)
  - SKIN DISORDER [None]
  - PULMONARY OEDEMA [None]
  - POST-TRAUMATIC STRESS DISORDER [None]
  - STEVENS-JOHNSON SYNDROME [None]
  - RESPIRATORY DISTRESS [None]
  - TOXIC EPIDERMAL NECROLYSIS [None]
  - CONFUSIONAL STATE [None]
  - ANXIETY [None]
